FAERS Safety Report 11694246 (Version 1)
Quarter: 2015Q4

REPORT INFORMATION
  Report Type: Spontaneous
  Country: US (occurrence: US)
  Receive Date: 20151103
  Receipt Date: 20151103
  Transmission Date: 20160304
  Serious: No
  Sender: FDA-Public Use
  Company Number: US-MALLINCKRODT-T201504964

PATIENT
  Age: 60 Year
  Sex: Male
  Weight: 110 kg

DRUGS (16)
  1. CRESTOR [Concomitant]
     Active Substance: ROSUVASTATIN CALCIUM
  2. FENTANYL CITRATE. [Suspect]
     Active Substance: FENTANYL CITRATE
     Dosage: UNK
  3. KLOR-CON [Concomitant]
     Active Substance: POTASSIUM CHLORIDE
     Dosage: 20 MEQ
  4. OLANZAPINE. [Concomitant]
     Active Substance: OLANZAPINE
  5. FENTANYL. [Concomitant]
     Active Substance: FENTANYL
     Dosage: 100 MCG
  6. TRICOR [Concomitant]
     Active Substance: FENOFIBRATE
  7. FENTANYL CITRATE. [Suspect]
     Active Substance: FENTANYL CITRATE
     Indication: BACK DISORDER
     Dosage: 1600 MCG; 8 TIMES DAILY
     Route: 048
     Dates: start: 2003
  8. PROAIR HFA [Concomitant]
     Active Substance: ALBUTEROL SULFATE
  9. UROXATRAL [Concomitant]
     Active Substance: ALFUZOSIN HYDROCHLORIDE
  10. NAPROXEN. [Concomitant]
     Active Substance: NAPROXEN
  11. LASIX [Concomitant]
     Active Substance: FUROSEMIDE
  12. LOSARTAN. [Concomitant]
     Active Substance: LOSARTAN
  13. FENOFIBRATE. [Concomitant]
     Active Substance: FENOFIBRATE
  14. CLONAZEPAM. [Concomitant]
     Active Substance: CLONAZEPAM
  15. METFORMIN [Concomitant]
     Active Substance: METFORMIN HYDROCHLORIDE
  16. GABAPENTIN. [Concomitant]
     Active Substance: GABAPENTIN

REACTIONS (3)
  - Drug ineffective [Not Recovered/Not Resolved]
  - Product quality issue [Not Recovered/Not Resolved]
  - Off label use [Not Recovered/Not Resolved]

NARRATIVE: CASE EVENT DATE: 20151014
